FAERS Safety Report 7969786-3 (Version None)
Quarter: 2011Q4

REPORT INFORMATION
  Report Type: 
  Country: None (occurrence: None)
  Receive Date: 20111212
  Receipt Date: 20111206
  Transmission Date: 20120403
  Serious: Yes (Other)
  Sender: FDA-Public Use
  Company Number: US-PFIZER INC-2011261254

PATIENT
  Sex: Female

DRUGS (7)
  1. AMLODIPINE BESYLATE [Suspect]
     Indication: HYPERTENSION
     Dosage: 5 MG, 2X/DAY
     Route: 048
     Dates: start: 20110629
  2. PIROXICAM [Concomitant]
     Dosage: 10 MG, 1-2 BY MOUTH ONCE DAILY
     Dates: start: 20090822
  3. EPIPEN [Concomitant]
     Indication: HYPERSENSITIVITY
     Dosage: UNK
     Dates: start: 20070323
  4. SPIRONOLACTONE [Suspect]
     Dosage: UNK
  5. GLUCOSAMINE HYDROCHLORIDE [Concomitant]
     Dosage: UNK
     Dates: start: 20090822
  6. LASIX [Concomitant]
     Indication: FLUID RETENTION
     Dosage: 20 MG, ONE DAILY
     Dates: start: 20110725
  7. ROBAXIN [Concomitant]
     Indication: MUSCLE SPASMS
     Dosage: 750 MG, 1 BY MOUTH FOUR TIMES AS NEEDED
     Dates: start: 20091120

REACTIONS (3)
  - MALAISE [None]
  - BLOOD PRESSURE INCREASED [None]
  - DRUG INEFFECTIVE [None]
